FAERS Safety Report 23969117 (Version 1)
Quarter: 2024Q2

REPORT INFORMATION
  Report Type: Spontaneous
  Country: GB (occurrence: None)
  Receive Date: 20240612
  Receipt Date: 20240612
  Transmission Date: 20240716
  Serious: Yes (Life-Threatening, Hospitalization, Disabling, Other)
  Sender: FDA-Public Use
  Company Number: 2024A134528

PATIENT
  Age: 59 Year
  Sex: Male
  Weight: 103 kg

DRUGS (21)
  1. DAPAGLIFLOZIN [Suspect]
     Active Substance: DAPAGLIFLOZIN
     Indication: Type 2 diabetes mellitus
     Route: 048
     Dates: start: 20160809, end: 20240501
  2. DAPAGLIFLOZIN [Suspect]
     Active Substance: DAPAGLIFLOZIN
     Indication: Cardiac failure
     Route: 048
     Dates: start: 20160809, end: 20240501
  3. BRIMONIDINE AND BRINZOLAMIDE [Concomitant]
     Indication: Glaucoma
  4. METFORMIN [Concomitant]
     Active Substance: METFORMIN HYDROCHLORIDE
     Indication: Diabetes mellitus
  5. ASPIRIN [Concomitant]
     Active Substance: ASPIRIN
     Indication: Myocardial infarction
  6. BISOPROLOL [Concomitant]
     Active Substance: BISOPROLOL\BISOPROLOL FUMARATE
  7. TIMOLOL/BIMATOPROST [Concomitant]
     Indication: Glaucoma
  8. BRIMONIDINE AND BRINZOLAMIDE [Concomitant]
     Indication: Glaucoma
  9. CINNARIZINE [Concomitant]
     Active Substance: CINNARIZINE
  10. FUROSEMIDE [Concomitant]
     Active Substance: FUROSEMIDE
     Indication: Cardiac failure
  11. GABAPENTIN [Concomitant]
     Active Substance: GABAPENTIN
  12. GLICLAZIDE [Concomitant]
     Active Substance: GLICLAZIDE
  13. IVABRADINE [Concomitant]
     Active Substance: IVABRADINE
  14. LANSOPRAZOLE [Concomitant]
     Active Substance: LANSOPRAZOLE
  15. ROSUVASTATIN [Concomitant]
     Active Substance: ROSUVASTATIN
  16. RYBELSUS [Concomitant]
     Active Substance: SEMAGLUTIDE
  17. ENTRESTO [Concomitant]
     Active Substance: SACUBITRIL\VALSARTAN
  18. SPIRONOLACTONE [Concomitant]
     Active Substance: SPIRONOLACTONE
  19. BECLOMETHASONE DIPROPIONATE\FORMOTEROL FUMARATE\GLYCOPYRROLATE [Concomitant]
     Active Substance: BECLOMETHASONE DIPROPIONATE\FORMOTEROL FUMARATE\GLYCOPYRROLATE
  20. BETAHISTINE [Concomitant]
     Active Substance: BETAHISTINE
  21. ALBUTEROL [Concomitant]
     Active Substance: ALBUTEROL

REACTIONS (3)
  - Fournier^s gangrene [Unknown]
  - Penile gangrene [Recovering/Resolving]
  - Sepsis [Unknown]

NARRATIVE: CASE EVENT DATE: 20240501
